FAERS Safety Report 11276821 (Version 1)
Quarter: 2015Q3

REPORT INFORMATION
  Report Type: Report from Study
  Country: KR (occurrence: KR)
  Receive Date: 20150716
  Receipt Date: 20150716
  Transmission Date: 20151125
  Serious: Yes (Hospitalization)
  Sender: FDA-Public Use
  Company Number: KR-B.I. PHARMACEUTICALS,INC./RIDGEFIELD-2015-BI-37545RK

PATIENT
  Age: 79 Year
  Sex: Male
  Weight: 63.5 kg

DRUGS (5)
  1. PRADAXA [Suspect]
     Active Substance: DABIGATRAN ETEXILATE MESYLATE
     Indication: CEREBROVASCULAR ACCIDENT PROPHYLAXIS
     Dosage: 220 MG
     Route: 048
     Dates: start: 20150330, end: 20150708
  2. TRESTAN [Concomitant]
     Indication: DECREASED APPETITE
     Dosage: DAILY DOSE:2
     Route: 048
     Dates: start: 20150624
  3. CURAN [Concomitant]
     Indication: PROPHYLAXIS
     Dosage: 300 MG
     Route: 048
     Dates: start: 20150330, end: 20150708
  4. TYLENOL [Concomitant]
     Active Substance: ACETAMINOPHEN
     Indication: HEADACHE
     Dosage: 650 MG
     Route: 048
     Dates: start: 20130911
  5. APROVEL [Concomitant]
     Active Substance: IRBESARTAN
     Indication: HYPERTENSION
     Dosage: 150 MG
     Route: 048
     Dates: start: 20110511

REACTIONS (1)
  - Jaundice cholestatic [Not Recovered/Not Resolved]

NARRATIVE: CASE EVENT DATE: 20150625
